FAERS Safety Report 6046193-4 (Version None)
Quarter: 2009Q1

REPORT INFORMATION
  Report Type: 
  Country: None (occurrence: None)
  Receive Date: 20090121
  Receipt Date: 20090121
  Transmission Date: 20090719
  Serious: No
  Sender: FDA-Public Use
  Company Number: None

PATIENT
  Age: 2 Year
  Sex: Female
  Weight: 13.6079 kg

DRUGS (1)
  1. JOHNSON'S SOOTHING VAPOR BATH [Suspect]
     Indication: BALNEOTHERAPY
     Dates: start: 20081226, end: 20081227

REACTIONS (1)
  - URINARY TRACT INFECTION [None]
